FAERS Safety Report 6246045-0 (Version None)
Quarter: 2009Q2

REPORT INFORMATION
  Report Type: 
  Country: None (occurrence: None)
  Receive Date: 20090626
  Receipt Date: 20081216
  Transmission Date: 20091009
  Serious: No
  Sender: FDA-Public Use
  Company Number: A0760734A

PATIENT
  Age: 62 Year
  Sex: Female

DRUGS (9)
  1. IMITREX [Suspect]
     Indication: MIGRAINE
     Route: 048
  2. IMITREX [Suspect]
     Route: 045
  3. TREXIMET [Suspect]
     Indication: MIGRAINE
     Route: 048
  4. OMEPRAZOLE [Concomitant]
  5. ATENOLOL [Concomitant]
  6. SYNTHROID [Concomitant]
  7. TRIACORT [Concomitant]
  8. DICLOFENAC [Concomitant]
  9. IMITREX [Concomitant]
     Route: 058

REACTIONS (2)
  - DRUG INEFFECTIVE [None]
  - MALABSORPTION [None]
